FAERS Safety Report 8760952 (Version 2)
Quarter: 2013Q2

REPORT INFORMATION
  Report Type: Report from Study
  Country: MX (occurrence: MX)
  Receive Date: 20120830
  Receipt Date: 20130506
  Transmission Date: 20140414
  Serious: Yes (Death, Other)
  Sender: FDA-Public Use
  Company Number: PHHY2012MX074638

PATIENT
  Age: 74 Year
  Sex: Male

DRUGS (1)
  1. RASILEZ HCT [Suspect]
     Indication: HYPERTENSION
     Dosage: 1 DF (300 MG ALIS AND 12.5 MG HCTZ), DAILY

REACTIONS (1)
  - Renal failure [Fatal]
